FAERS Safety Report 23966496 (Version 1)
Quarter: 2024Q2

REPORT INFORMATION
  Report Type: Spontaneous
  Country: US (occurrence: None)
  Receive Date: 20240611
  Receipt Date: 20240611
  Transmission Date: 20240716
  Serious: No
  Sender: FDA-Public Use
  Company Number: None

PATIENT
  Sex: Female

DRUGS (2)
  1. TERIPARATIDE ACETATE [Suspect]
     Active Substance: TERIPARATIDE ACETATE
     Indication: Senile osteoporosis
     Dosage: 20 MCG 1 TIME A DAY  SUBCUTANEOUS
     Route: 058
     Dates: start: 202311
  2. TERIPARATIDE [Concomitant]

REACTIONS (1)
  - Adverse drug reaction [None]
